FAERS Safety Report 16201060 (Version 1)
Quarter: 2019Q2

REPORT INFORMATION
  Report Type: Spontaneous
  Country: US (occurrence: US)
  Receive Date: 20190416
  Receipt Date: 20190416
  Transmission Date: 20190711
  Serious: No
  Sender: FDA-Public Use
  Company Number: US-BION-007192

PATIENT
  Age: 71 Year
  Sex: Male
  Weight: 93 kg

DRUGS (1)
  1. ALEVE EASY OPEN ARTHRITIS CAP [Suspect]
     Active Substance: NAPROXEN SODIUM
     Indication: TOOTHACHE
     Dosage: EVERY 2, 4 OR MORE HOURS FOR A?TOTAL OF 8 TABLETS IN LESS THAN 24 HOURS
     Route: 048
     Dates: start: 20180511

REACTIONS (1)
  - Intentional product misuse [Not Recovered/Not Resolved]
